FAERS Safety Report 17685523 (Version 1)
Quarter: 2020Q2

REPORT INFORMATION
  Report Type: Spontaneous
  Country: US (occurrence: US)
  Receive Date: 20200420
  Receipt Date: 20200420
  Transmission Date: 20200714
  Serious: No
  Sender: FDA-Public Use
  Company Number: US-SA-2020SA102342

PATIENT
  Age: 64 Year
  Sex: Male

DRUGS (14)
  1. BD FEN [Concomitant]
  2. CITALOPRAM HYDROBROMIDE. [Concomitant]
     Active Substance: CITALOPRAM HYDROBROMIDE
  3. FORTEO [Concomitant]
     Active Substance: TERIPARATIDE
  4. SPIRIVA [Concomitant]
     Active Substance: TIOTROPIUM BROMIDE MONOHYDRATE
  5. AZITHROMYCIN ANHYDROUS. [Concomitant]
     Active Substance: AZITHROMYCIN ANHYDROUS
  6. PRAZOSIN HCL [Concomitant]
     Active Substance: PRAZOSIN HYDROCHLORIDE
  7. DUPIXENT [Suspect]
     Active Substance: DUPILUMAB
     Indication: PRODUCT USED FOR UNKNOWN INDICATION
     Dosage: 300 MG, QOW
     Route: 058
     Dates: start: 201912
  8. APTIOM [Concomitant]
     Active Substance: ESLICARBAZEPINE ACETATE
  9. SINGULAIR [Concomitant]
     Active Substance: MONTELUKAST SODIUM
  10. SYMBICORT [Concomitant]
     Active Substance: BUDESONIDE\FORMOTEROL FUMARATE DIHYDRATE
  11. TEMAZEPAM. [Concomitant]
     Active Substance: TEMAZEPAM
  12. PRAVASTATIN SODIUM. [Concomitant]
     Active Substance: PRAVASTATIN SODIUM
  13. PREDNISONE. [Concomitant]
     Active Substance: PREDNISONE
  14. DALIRESP [Concomitant]
     Active Substance: ROFLUMILAST

REACTIONS (5)
  - Dyspnoea [Unknown]
  - Sinusitis [Unknown]
  - Drug ineffective [Unknown]
  - Nasal congestion [Unknown]
  - Fatigue [Unknown]

NARRATIVE: CASE EVENT DATE: 2020
